FAERS Safety Report 13030111 (Version 1)
Quarter: 2016Q4

REPORT INFORMATION
  Report Type: Spontaneous
  Country: US (occurrence: US)
  Receive Date: 20161215
  Receipt Date: 20161215
  Transmission Date: 20170207
  Serious: No
  Sender: FDA-Public Use
  Company Number: US-VERTEX PHARMACEUTICALS-2016-007013

PATIENT
  Age: 12 Year
  Sex: Male

DRUGS (3)
  1. ORKAMBI [Suspect]
     Active Substance: IVACAFTOR\LUMACAFTOR
     Dosage: 12-YEAR-OLD DOSE
     Route: 048
     Dates: start: 201611, end: 201612
  2. ORKAMBI [Suspect]
     Active Substance: IVACAFTOR\LUMACAFTOR
     Indication: CYSTIC FIBROSIS
     Dosage: PEDIATRIC DOSE
     Route: 048
     Dates: start: 20161018, end: 201611
  3. ORKAMBI [Suspect]
     Active Substance: IVACAFTOR\LUMACAFTOR
     Dosage: HALF DOSE
     Route: 048
     Dates: start: 201612

REACTIONS (1)
  - Rash [Unknown]

NARRATIVE: CASE EVENT DATE: 201612
